FAERS Safety Report 6528237-6 (Version None)
Quarter: 2010Q1

REPORT INFORMATION
  Report Type: 
  Country: None (occurrence: None)
  Receive Date: 20100105
  Receipt Date: 20100105
  Transmission Date: 20100710
  Serious: Yes (Hospitalization)
  Sender: FDA-Public Use
  Company Number: None

PATIENT
  Sex: Male
  Weight: 87.0906 kg

DRUGS (2)
  1. PLAVIX [Suspect]
     Indication: CORONARY ARTERY DISEASE
     Dosage: 75MG ONCE DAILY PO
     Route: 048
     Dates: start: 20080701, end: 20091206
  2. ASPIRIN [Suspect]
     Indication: CORONARY ARTERY DISEASE
     Dosage: 81 MG ONCE DAILY PO
     Route: 048
     Dates: start: 20081126, end: 20091206

REACTIONS (4)
  - FATIGUE [None]
  - OESOPHAGEAL ULCER [None]
  - OESOPHAGEAL VARICES HAEMORRHAGE [None]
  - RECTAL HAEMORRHAGE [None]
